FAERS Safety Report 13209192 (Version 3)
Quarter: 2017Q1

REPORT INFORMATION
  Report Type: Spontaneous
  Country: US (occurrence: US)
  Receive Date: 20170209
  Receipt Date: 20170330
  Transmission Date: 20170428
  Serious: Yes (Other)
  Sender: FDA-Public Use
  Company Number: US-PFIZER INC-2017053331

PATIENT
  Age: 66 Year
  Sex: Female
  Weight: 52.15 kg

DRUGS (6)
  1. PREMARIN [Suspect]
     Active Substance: ESTROGENS, CONJUGATED
     Indication: HORMONE REPLACEMENT THERAPY
     Dosage: 1.25 MG, 1X/DAY
     Route: 048
  2. AMLODIPINE BESILATE W/BENAZEPRIL [Concomitant]
     Indication: HYPERTENSION
     Dosage: 1 DF, 2X/DAY, [AMLODIPINE BESILATE  5 MG]/[ BENAZEPRIL 20 MG]
  3. PREMARIN [Suspect]
     Active Substance: ESTROGENS, CONJUGATED
     Dosage: UNK
  4. AMLODIPINE BESILATE/BENAZEPRIL HYDROCHLORIDE [Concomitant]
     Indication: HYPERTENSION
     Dosage: 1 DF, 2X/DAY [AMLODIPINE BESILATE 5 MG-BENAZEPRIL HCL-20 MG]
  5. PREMARIN [Suspect]
     Active Substance: ESTROGENS, CONJUGATED
     Dosage: 0.9 MG, UNK
     Route: 048
  6. PREMARIN [Suspect]
     Active Substance: ESTROGENS, CONJUGATED
     Indication: MENOPAUSAL SYMPTOMS
     Dosage: 0.625 MG, UNK
     Route: 048

REACTIONS (9)
  - Oesophageal spasm [Recovered/Resolved]
  - Sleep disorder [Unknown]
  - Blood oestrogen decreased [Unknown]
  - Depression [Recovered/Resolved]
  - Foot deformity [Unknown]
  - Arthritis [Unknown]
  - Vaginal cyst [Unknown]
  - Anxiety [Unknown]
  - Intentional product use issue [Unknown]
